FAERS Safety Report 7017758 (Version 3)
Quarter: 2013Q2

REPORT INFORMATION
  Report Type: Spontaneous
  Country: US (occurrence: US)
  Receive Date: 20090611
  Receipt Date: 20130426
  Transmission Date: 20140414
  Serious: Yes (Hospitalization, Other)
  Sender: FDA-Public Use
  Company Number: US-ELI_LILLY_AND_COMPANY-US200906001000

PATIENT
  Age: 52 Year
  Sex: Female

DRUGS (2)
  1. HUMATROPE [Suspect]
     Indication: HYPOTHYROIDISM
  2. HUMATROPE [Suspect]
     Dosage: 2.5 MG, QD

REACTIONS (7)
  - Multiple sclerosis [Unknown]
  - Optic neuritis [Unknown]
  - Dehydration [Unknown]
  - Blood pressure decreased [Unknown]
  - Vomiting [Unknown]
  - Diarrhoea [Unknown]
  - Weight increased [Not Recovered/Not Resolved]
